FAERS Safety Report 15943006 (Version 1)
Quarter: 2019Q1

REPORT INFORMATION
  Report Type: Spontaneous
  Country: US (occurrence: US)
  Receive Date: 20190210
  Receipt Date: 20190210
  Transmission Date: 20190417
  Serious: Yes (Hospitalization, Other)
  Sender: FDA-Public Use
  Company Number: PHHY2019US028523

PATIENT
  Age: 31 Year
  Sex: Male

DRUGS (3)
  1. IXEKIZUMAB [Concomitant]
     Active Substance: IXEKIZUMAB
     Indication: PSORIASIS
     Route: 065
  2. METHYLPREDNISOLONE. [Suspect]
     Active Substance: METHYLPREDNISOLONE
     Indication: COLITIS ULCERATIVE
     Dosage: 60 MG, UNK
     Route: 042
  3. MESALAZINE [Concomitant]
     Active Substance: MESALAMINE
     Indication: COLITIS ULCERATIVE
     Dosage: 4 G, UNK
     Route: 048

REACTIONS (3)
  - Cytomegalovirus infection [Recovering/Resolving]
  - Cytomegalovirus colitis [Recovering/Resolving]
  - Drug ineffective [Recovering/Resolving]
